FAERS Safety Report 8371267-2 (Version None)
Quarter: 2012Q1

REPORT INFORMATION
  Report Type: 
  Country: None (occurrence: None)
  Receive Date: 20120323
  Receipt Date: 20110106
  Transmission Date: 20120608
  Serious: Yes (Hospitalization)
  Sender: FDA-Public Use
  Company Number: 163-21880-10111657

PATIENT
  Age: 81 Year
  Sex: Male

DRUGS (4)
  1. DIFLUCAN [Concomitant]
  2. LEVAQUIN [Concomitant]
  3. REVLIMID [Suspect]
     Indication: MULTIPLE MYELOMA
     Dosage: 25 MG, 1 IN 1 D, PO 15 MG, 1 IN 1 D, PO
     Route: 048
     Dates: start: 20100701, end: 20101103
  4. REVLIMID [Suspect]
     Indication: MULTIPLE MYELOMA
     Dosage: 25 MG, 1 IN 1 D, PO 15 MG, 1 IN 1 D, PO
     Route: 048
     Dates: start: 20101109

REACTIONS (4)
  - GENITAL CANDIDIASIS [None]
  - HAEMOGLOBIN DECREASED [None]
  - PNEUMONIA [None]
  - FEBRILE NEUTROPENIA [None]
